FAERS Safety Report 10543788 (Version 1)
Quarter: 2014Q4

REPORT INFORMATION
  Report Type: Spontaneous
  Country: US (occurrence: None)
  Receive Date: 20141010
  Receipt Date: 20141010
  Transmission Date: 20150529
  Serious: Yes (Hospitalization, Other)
  Sender: FDA-Public Use
  Company Number: 163-POMAL-14072157

PATIENT
  Age: 60 Year
  Sex: Male

DRUGS (11)
  1. POMALYST [Suspect]
     Active Substance: POMALIDOMIDE
     Indication: PLASMA CELL MYELOMA
     Route: 048
     Dates: start: 201402
  2. KLOR-CON M10 (POASSIUM CHLORIDE) [Concomitant]
  3. INVOKANA [Concomitant]
     Active Substance: CANAGLIFLOZIN
  4. LOSARTAN POTASSIUM (LOSARTAN POTASSIUM) [Concomitant]
     Active Substance: LOSARTAN POTASSIUM
  5. PROCTOSOL HC (HYDROCORTUSONE ACETATE) [Concomitant]
  6. HUMULIN N (INSULN HUMAN INJECTION, ISOPHANE) [Concomitant]
  7. OXYCODONE HCL (OXYCODONE HYDROCHLORIDE) [Concomitant]
  8. LISINOPRIL (LISINOPRIL) [Concomitant]
     Active Substance: LISINOPRIL
  9. PRILOSEC (OMEPRAZOLE) [Concomitant]
     Active Substance: OMEPRAZOLE MAGNESIUM
  10. METFORMIN HCL (METFORMIN HYDROCHLORIDE) [Concomitant]
  11. LACTULOSE (LACTULOSE) [Concomitant]
     Active Substance: LACTULOSE

REACTIONS (2)
  - Pyrexia [None]
  - Weight decreased [None]

NARRATIVE: CASE EVENT DATE: 2014
